FAERS Safety Report 7673768-9 (Version None)
Quarter: 2011Q3

REPORT INFORMATION
  Report Type: 
  Country: None (occurrence: None)
  Receive Date: 20110810
  Receipt Date: 20110701
  Transmission Date: 20111222
  Serious: Yes (Other)
  Sender: FDA-Public Use
  Company Number: US-ASTELLAS-2011US003602

PATIENT
  Age: 68 Year
  Sex: Male

DRUGS (4)
  1. TAXOL [Suspect]
     Indication: PRODUCT USED FOR UNKNOWN INDICATION
     Dosage: UNK
     Route: 065
  2. TARCEVA [Suspect]
     Dosage: 100 MG, UID/QD
     Route: 048
     Dates: start: 20110501
  3. TARCEVA [Suspect]
     Indication: SARCOMA
     Dosage: 150 MG, UID/QD
     Route: 048
     Dates: start: 20100901, end: 20110501
  4. CARBOPLATIN [Concomitant]
     Indication: PRODUCT USED FOR UNKNOWN INDICATION
     Dosage: UNK
     Route: 065

REACTIONS (3)
  - RASH [None]
  - SARCOMA EXCISION [None]
  - BURNING SENSATION [None]
